FAERS Safety Report 8593510-7 (Version None)
Quarter: 2012Q3

REPORT INFORMATION
  Report Type: 
  Country: None (occurrence: None)
  Receive Date: 20120814
  Receipt Date: 20120730
  Transmission Date: 20120928
  Serious: Yes (Hospitalization)
  Sender: FDA-Public Use
  Company Number: GB-WATSON-2012-13767

PATIENT
  Age: 77 Year
  Sex: Female

DRUGS (1)
  1. FENTANYL-100 [Suspect]
     Indication: BACK PAIN
     Dosage: 50 MCG, Q1H
     Route: 062

REACTIONS (5)
  - SUNBURN [None]
  - COMA [None]
  - DEHYDRATION [None]
  - RESPIRATORY DEPRESSION [None]
  - ACCIDENTAL OVERDOSE [None]
